FAERS Safety Report 8529749-6 (Version None)
Quarter: 2012Q3

REPORT INFORMATION
  Report Type: 
  Country: None (occurrence: None)
  Receive Date: 20120723
  Receipt Date: 20120716
  Transmission Date: 20120928
  Serious: Yes (Other)
  Sender: FDA-Public Use
  Company Number: FR-JNJFOC-20110907052

PATIENT
  Sex: Female

DRUGS (2)
  1. ACETAMINOPHEN AND TRAMADOL HCL [Suspect]
     Indication: BACK PAIN
     Route: 065
  2. ANTI-INFLAMMATORY AGENT [Concomitant]
     Route: 065

REACTIONS (1)
  - LOSS OF CONSCIOUSNESS [None]
